FAERS Safety Report 7802597-8 (Version None)
Quarter: 2011Q4

REPORT INFORMATION
  Report Type: 
  Country: None (occurrence: None)
  Receive Date: 20111007
  Receipt Date: 20110926
  Transmission Date: 20120403
  Serious: Yes (Hospitalization, Other)
  Sender: FDA-Public Use
  Company Number: US-BAYER-2011-007235

PATIENT
  Age: 20 Year
  Sex: Female
  Weight: 52.154 kg

DRUGS (13)
  1. YASMIN [Suspect]
     Indication: OVARIAN CYST
  2. YASMIN [Suspect]
     Indication: CONTRACEPTION
     Dosage: UNK
     Route: 048
     Dates: start: 20040210, end: 20060201
  3. BUTALBITAL [Concomitant]
     Indication: MIGRAINE
     Dosage: UNK UNK, PRN
     Dates: start: 20050331
  4. LEVAQUIN [Concomitant]
     Dosage: UNK
     Route: 042
     Dates: start: 20050505
  5. CODEINE SULFATE [Concomitant]
     Indication: MIGRAINE
     Dosage: UNK UNK, PRN
     Dates: start: 20050331
  6. FLAGYL [Concomitant]
     Dosage: UNK
     Dates: start: 20050615
  7. FROVA [Concomitant]
     Indication: MIGRAINE
     Dosage: UNK UNK, PRN
     Dates: start: 20050511
  8. PRIMAXIN [Concomitant]
     Dosage: UNK
     Dates: start: 20050615
  9. YASMIN [Suspect]
     Indication: ACNE
  10. MULTI-VITAMIN [Concomitant]
     Indication: UNEVALUABLE EVENT
     Dosage: UNK UNK, QD
  11. CAFFEINE CITRATE [Concomitant]
     Indication: MIGRAINE
     Dosage: UNK UNK, PRN
     Dates: start: 20050331
  12. APAP TAB [Concomitant]
     Indication: MIGRAINE
     Dosage: UNK UNK, PRN
     Dates: start: 20050331
  13. FLAGYL [Concomitant]
     Dosage: UNK
     Dates: start: 20050505

REACTIONS (6)
  - POSTOPERATIVE WOUND INFECTION [None]
  - INFECTION [None]
  - PAIN [None]
  - ABDOMINAL ABSCESS [None]
  - INFECTIOUS PERITONITIS [None]
  - BILIARY DYSKINESIA [None]
